FAERS Safety Report 10383830 (Version 1)
Quarter: 2014Q1

REPORT INFORMATION
  Report Type: Spontaneous
  Country: US (occurrence: None)
  Receive Date: 20140306
  Receipt Date: 20140306
  Transmission Date: 20141002
  Serious: Yes (Other)
  Sender: FDA-Public Use
  Company Number: 163-21880-13113313

PATIENT
  Age: 62 Year
  Sex: Male
  Weight: 97.07 kg

DRUGS (17)
  1. REVLIMID (LENALIDOMIDE) (CAPSULES) [Suspect]
     Indication: PLASMA CELL MYELOMA
     Dosage: 15 MG, 14 IN 21 D, PO DISCONTINUED
     Route: 048
     Dates: start: 20120418
  2. ACYCLOVIR (ACICLOVIR) (ACICLOVIR) [Concomitant]
  3. DEXAMETHASONE [Concomitant]
  4. HYDROCODONE [Concomitant]
  5. LASIX (FUROSEMIDE) [Concomitant]
  6. LIPITOR (ATORVASTATIN) [Concomitant]
  7. LOREZEPAM [Concomitant]
  8. MEGACE (MEGESTROL ACETATE) [Concomitant]
  9. MULTIVITAMIN (MULTIVITAMINS) [Concomitant]
  10. NEXIUM (ESOMEPRAZOLE) [Concomitant]
  11. OXYCONTIN (OXYCODONE HYDROCHLORIDE) [Concomitant]
  12. PAXIL (PAROXETINE HYDROCHLORIDE) [Concomitant]
  13. PENTASA (MESALAZINE) [Concomitant]
  14. POTASSIUM [Concomitant]
  15. TOPROL (METOPROLOL SUCCINATE) [Concomitant]
  16. WELLBUTRIN (BUPROPION HYDROCHLORIDE) [Concomitant]
  17. ZOFRAN (ONSANSETRON HYDROCHLORIDE) [Concomitant]

REACTIONS (2)
  - Deep vein thrombosis [None]
  - Plasma cell myeloma [None]
